FAERS Safety Report 21791369 (Version 1)
Quarter: 2022Q4

REPORT INFORMATION
  Report Type: Spontaneous
  Country: US (occurrence: US)
  Receive Date: 20221228
  Receipt Date: 20221228
  Transmission Date: 20230112
  Serious: No
  Sender: FDA-Public Use
  Company Number: US-JNJFOC-20221244783

PATIENT
  Age: 44 Year
  Sex: Female

DRUGS (1)
  1. STELARA [Suspect]
     Active Substance: USTEKINUMAB
     Indication: Crohn^s disease
     Dosage: STELARA VIAL 130.00 MG / 26.00 ML
     Route: 040
     Dates: start: 20221220

REACTIONS (4)
  - Erythema [Unknown]
  - Chest discomfort [Unknown]
  - Abdominal pain [Unknown]
  - Rash [Unknown]
